FAERS Safety Report 7627240-2 (Version None)
Quarter: 2011Q3

REPORT INFORMATION
  Report Type: 
  Country: None (occurrence: None)
  Receive Date: 20110721
  Receipt Date: 20110711
  Transmission Date: 20111222
  Serious: Yes (Hospitalization)
  Sender: FDA-Public Use
  Company Number: MX-TEVA-290669ISR

PATIENT
  Sex: Male

DRUGS (4)
  1. ABATACEPT [Suspect]
     Indication: RHEUMATOID ARTHRITIS
     Dosage: 17.8571 MILLIGRAM;
     Route: 058
     Dates: start: 20090302, end: 20110516
  2. METHOTREXATE [Suspect]
     Indication: RHEUMATOID ARTHRITIS
     Dates: start: 20080326, end: 20110517
  3. FOLIC ACID [Concomitant]
     Dates: start: 20080326, end: 20110517
  4. PREDNISONE [Concomitant]
     Dates: start: 20100326, end: 20110517

REACTIONS (1)
  - ABSCESS ORAL [None]
